FAERS Safety Report 18043286 (Version 2)
Quarter: 2020Q3

REPORT INFORMATION
  Report Type: Report from Study
  Country: US (occurrence: US)
  Receive Date: 20200720
  Receipt Date: 20200722
  Transmission Date: 20201103
  Serious: Yes (Other)
  Sender: FDA-Public Use
  Company Number: US-AMGEN-USASL2020113234

PATIENT
  Age: 78 Year
  Sex: Male

DRUGS (3)
  1. ENBREL [Suspect]
     Active Substance: ETANERCEPT
     Dosage: UNK UNK, QWK
     Route: 065
     Dates: start: 2020, end: 2020
  2. ARAVA [Suspect]
     Active Substance: LEFLUNOMIDE
     Indication: RHEUMATOID ARTHRITIS
     Dosage: 20 MILLIGRAM
     Route: 065
     Dates: end: 2020
  3. ENBREL [Suspect]
     Active Substance: ETANERCEPT
     Indication: RHEUMATOID ARTHRITIS
     Dosage: UNK UNK, QWK
     Route: 065
     Dates: start: 2020, end: 2020

REACTIONS (10)
  - Rectal haemorrhage [Recovered/Resolved]
  - Hepatitis B virus test positive [Unknown]
  - Gastrointestinal disorder [Unknown]
  - Rheumatoid arthritis [Unknown]
  - Hepatitis A virus test positive [Unknown]
  - Alopecia [Unknown]
  - Hypersensitivity [Unknown]
  - Hepatitis C virus test positive [Unknown]
  - Pain in extremity [Not Recovered/Not Resolved]
  - Fungal infection [Unknown]

NARRATIVE: CASE EVENT DATE: 2020
